FAERS Safety Report 8424724-4 (Version None)
Quarter: 2012Q2

REPORT INFORMATION
  Report Type: 
  Country: None (occurrence: None)
  Receive Date: 20120605
  Receipt Date: 20120605
  Transmission Date: 20120825
  Serious: Yes (Life-Threatening, Hospitalization)
  Sender: FDA-Public Use
  Company Number: None

PATIENT
  Age: 60 Year
  Sex: Male

DRUGS (3)
  1. WARFARIN SODIUM [Suspect]
     Dosage: PO
     Route: 048
  2. CIPROFLOXACIN HCL [Suspect]
     Indication: INFECTION
     Dosage: PO
     Route: 048
  3. CIPROFLOXACIN HCL [Suspect]
     Indication: DEEP VEIN THROMBOSIS
     Dosage: PO
     Route: 048

REACTIONS (1)
  - INTERNATIONAL NORMALISED RATIO INCREASED [None]
